FAERS Safety Report 7144990-5 (Version None)
Quarter: 2010Q4

REPORT INFORMATION
  Report Type: 
  Country: None (occurrence: None)
  Receive Date: 20101208
  Receipt Date: 20101124
  Transmission Date: 20110411
  Serious: Yes (Death)
  Sender: FDA-Public Use
  Company Number: US-MYLANLABS-2010S1021669

PATIENT
  Age: 23 Year
  Sex: Male

DRUGS (2)
  1. FENTANYL [Suspect]
     Route: 048
  2. FENTANYL [Suspect]
     Route: 048

REACTIONS (2)
  - ACCIDENTAL OVERDOSE [None]
  - INTENTIONAL DRUG MISUSE [None]
